FAERS Safety Report 19856966 (Version 6)
Quarter: 2022Q4

REPORT INFORMATION
  Report Type: Report from Study
  Country: KR (occurrence: KR)
  Receive Date: 20210920
  Receipt Date: 20221202
  Transmission Date: 20230113
  Serious: Yes (Hospitalization)
  Sender: FDA-Public Use
  Company Number: KR-ALNYLAM PHARMACEUTICALS, INC.-ALN-2021-002266

PATIENT

DRUGS (27)
  1. PATISIRAN SODIUM [Suspect]
     Active Substance: PATISIRAN SODIUM
     Indication: Hereditary neuropathic amyloidosis
     Dosage: 0.3 MILLIGRAM/KILOGRAM, Q3W
     Route: 042
     Dates: start: 20170518
  2. PATISIRAN SODIUM [Suspect]
     Active Substance: PATISIRAN SODIUM
     Dosage: 0.3 MILLIGRAM/KILOGRAM, Q3W
     Route: 042
     Dates: start: 20210908
  3. DEXAMETHASONE [Concomitant]
     Active Substance: DEXAMETHASONE
     Indication: Prophylaxis
     Dosage: 10 MILLIGRAM
     Route: 042
     Dates: start: 20180822
  4. DEXAMETHASONE [Concomitant]
     Active Substance: DEXAMETHASONE
     Dosage: 10 MILLIGRAM
     Route: 042
     Dates: start: 20180212, end: 20180710
  5. DEXAMETHASONE [Concomitant]
     Active Substance: DEXAMETHASONE
     Dosage: 10 MILLIGRAM
     Route: 042
     Dates: start: 20180103, end: 20180103
  6. DEXAMETHASONE [Concomitant]
     Active Substance: DEXAMETHASONE
     Dosage: 10 MILLIGRAM
     Route: 042
     Dates: start: 20170518, end: 20171122
  7. DEXAMETHASONE [Concomitant]
     Active Substance: DEXAMETHASONE
     Indication: Prophylaxis
     Dosage: 10 MILLIGRAM
     Route: 048
     Dates: start: 20180801, end: 20180801
  8. DEXAMETHASONE [Concomitant]
     Active Substance: DEXAMETHASONE
     Dosage: 10 MILLIGRAM
     Route: 048
     Dates: start: 20180124, end: 20180124
  9. DEXAMETHASONE [Concomitant]
     Active Substance: DEXAMETHASONE
     Dosage: 10 MILLIGRAM
     Route: 048
     Dates: start: 20171213, end: 20171213
  10. RANITIDINE [Concomitant]
     Active Substance: RANITIDINE
     Indication: Prophylaxis
     Dosage: 50 MILLIGRAM
     Route: 042
     Dates: start: 20170518, end: 20190925
  11. FAMOTIDINE [Concomitant]
     Active Substance: FAMOTIDINE
     Indication: Prophylaxis
     Dosage: 20 MILLIGRAM
     Route: 042
     Dates: start: 20210120
  12. FAMOTIDINE [Concomitant]
     Active Substance: FAMOTIDINE
     Dosage: 10 MILLIGRAM
     Route: 042
     Dates: start: 20201230, end: 20201230
  13. FAMOTIDINE [Concomitant]
     Active Substance: FAMOTIDINE
     Dosage: 20 MILLIGRAM
     Route: 042
     Dates: start: 20191016, end: 20201209
  14. CHLORPHENIRAMINE MALEATE [Concomitant]
     Active Substance: CHLORPHENIRAMINE MALEATE
     Indication: Prophylaxis
     Dosage: 10 MILLIGRAM
     Route: 042
     Dates: start: 20170518
  15. ACETAMINOPHEN [Concomitant]
     Active Substance: ACETAMINOPHEN
     Indication: Prophylaxis
     Dosage: 500 MILLIGRAM
     Route: 048
     Dates: start: 20170518
  16. VITAMIN A [Concomitant]
     Active Substance: VITAMIN A
     Indication: Prophylaxis
     Dosage: 1 DOSAGE FORM (CAPSULE), QD
     Route: 048
     Dates: start: 20151028
  17. BACILLUS LICHENFORMIS [Concomitant]
     Indication: Gastrooesophageal reflux disease
     Dosage: 250 MILLIGRAM, TID
     Route: 048
     Dates: start: 20161010
  18. EDOXABAN [Concomitant]
     Active Substance: EDOXABAN
     Indication: Atrial fibrillation
     Dosage: 30 MILLIGRAM, QD
     Route: 048
     Dates: start: 20170219
  19. FUROSEMIDE [Concomitant]
     Active Substance: FUROSEMIDE
     Indication: Oedema peripheral
     Dosage: 20 MILLIGRAM, QD
     Route: 048
     Dates: start: 20170308
  20. HYALURONATE SODIUM [Concomitant]
     Active Substance: HYALURONATE SODIUM
     Indication: Dry eye
     Dosage: 0.9 DROP, QID
     Route: 031
     Dates: start: 20170518
  21. MIDODRINE HYDROCHLORIDE [Concomitant]
     Active Substance: MIDODRINE HYDROCHLORIDE
     Indication: Hypotension
     Dosage: 5 MILLIGRAM, BID
     Route: 048
     Dates: start: 20171220
  22. PINAVERIUM BROMIDE [Concomitant]
     Active Substance: PINAVERIUM BROMIDE
     Indication: Gastrooesophageal reflux disease
     Dosage: 50 MILLIGRAM, TID
     Route: 048
     Dates: start: 20161010
  23. RIFAXIMIN [Concomitant]
     Active Substance: RIFAXIMIN
     Indication: Gastrooesophageal reflux disease
     Dosage: 200 MILLIGRAM, TID
     Route: 048
     Dates: start: 20161010
  24. SPIRONOLACTONE [Concomitant]
     Active Substance: SPIRONOLACTONE
     Indication: Oedema peripheral
     Dosage: 12.5 MILLIGRAM, QD
     Route: 048
     Dates: start: 20170308
  25. Unizyme [Concomitant]
     Indication: Gastrooesophageal reflux disease
     Dosage: 1 DOSAGE FORM (TABLET), TID
     Route: 048
     Dates: start: 20161010
  26. CELECOXIB [Concomitant]
     Active Substance: CELECOXIB
     Indication: Trigger finger
     Dosage: 100 MILLIGRAM, BID
     Route: 048
     Dates: start: 20210819
  27. CETAMADOL [Concomitant]
     Indication: Trigger finger
     Dosage: 1 DOSAGE FORM, BID
     Route: 048
     Dates: start: 20210819

REACTIONS (1)
  - Cellulitis [Recovered/Resolved]

NARRATIVE: CASE EVENT DATE: 20210909
